FAERS Safety Report 21144784 (Version 1)
Quarter: 2022Q3

REPORT INFORMATION
  Report Type: Spontaneous
  Country: US (occurrence: None)
  Receive Date: 20220728
  Receipt Date: 20220728
  Transmission Date: 20221027
  Serious: No
  Sender: FDA-Public Use
  Company Number: US-ROCHE-3062918

PATIENT
  Sex: Female
  Weight: 68.100 kg

DRUGS (4)
  1. PERJETA [Suspect]
     Active Substance: PERTUZUMAB
     Indication: Breast cancer
     Route: 042
     Dates: start: 20210712, end: 202111
  2. HERCEPTIN [Suspect]
     Active Substance: TRASTUZUMAB
     Indication: Breast cancer
     Route: 042
     Dates: start: 20210712, end: 202111
  3. ELM [Concomitant]
     Active Substance: ELM
     Indication: Nausea
     Route: 048
  4. NEULASTA [Concomitant]
     Active Substance: PEGFILGRASTIM
     Indication: White blood cell count

REACTIONS (7)
  - Weight decreased [Unknown]
  - Diarrhoea [Unknown]
  - Nausea [Unknown]
  - Unevaluable event [Unknown]
  - Dysgeusia [Unknown]
  - Pain [Unknown]
  - Disturbance in attention [Unknown]
